FAERS Safety Report 10241512 (Version 1)
Quarter: 2014Q2

REPORT INFORMATION
  Report Type: Spontaneous
  Country: US (occurrence: US)
  Receive Date: 20140617
  Receipt Date: 20140617
  Transmission Date: 20141212
  Serious: Yes (Hospitalization, Other)
  Sender: FDA-Public Use
  Company Number: US-ELI_LILLY_AND_COMPANY-US201406002706

PATIENT
  Age: 73 Year
  Sex: Male

DRUGS (3)
  1. HUMALOG LISPRO [Suspect]
     Indication: DIABETES MELLITUS
     Dosage: 11 U, TID
     Route: 065
  2. LANTUS [Concomitant]
  3. LOVASTATIN [Concomitant]

REACTIONS (5)
  - Arterial occlusive disease [Unknown]
  - Pain in extremity [Unknown]
  - Wound [Unknown]
  - Blood glucose increased [Recovered/Resolved]
  - Underdose [Recovered/Resolved]
